FAERS Safety Report 5798651-5 (Version None)
Quarter: 2008Q3

REPORT INFORMATION
  Report Type: 
  Country: None (occurrence: None)
  Receive Date: 20080702
  Receipt Date: 20080701
  Transmission Date: 20090109
  Serious: Yes (Other)
  Sender: FDA-Public Use
  Company Number: PHHO2006IT10945

PATIENT
  Sex: Male
  Weight: 68 kg

DRUGS (10)
  1. ZOMETA [Suspect]
     Indication: METASTASES TO BONE
     Route: 042
     Dates: end: 20060509
  2. PLACEBO PLACEBO [Suspect]
     Indication: METASTASES TO BONE
     Dosage: TREATMENT PERIOD
     Route: 042
     Dates: start: 20000616
  3. LHRH FERRING [Concomitant]
  4. ANTIANDROGENS [Concomitant]
  5. ESTRAMUSTINE [Concomitant]
  6. COUMADIN [Concomitant]
  7. DELTACORTENE [Concomitant]
  8. TAXOTERE [Concomitant]
  9. DOCETAXEL [Concomitant]
     Indication: METASTASES TO BONE
     Dosage: 120 MG, TIW
     Dates: start: 20050314, end: 20060426
  10. PREDNISONE 50MG TAB [Concomitant]
     Indication: METASTASES TO BONE
     Dosage: 10 MG
     Dates: start: 20050313, end: 20060509

REACTIONS (3)
  - OSTEITIS [None]
  - OSTEONECROSIS [None]
  - PAIN IN JAW [None]
